FAERS Safety Report 12088264 (Version 1)
Quarter: 2016Q1

REPORT INFORMATION
  Report Type: Spontaneous
  Country: US (occurrence: US)
  Receive Date: 20160218
  Receipt Date: 20160218
  Transmission Date: 20160526
  Serious: No
  Sender: FDA-Public Use
  Company Number: US-BIOGEN-2015BI044238

PATIENT
  Age: 52 Year
  Sex: Female

DRUGS (2)
  1. TECFIDERA [Suspect]
     Active Substance: DIMETHYL FUMARATE
     Dates: start: 20140108
  2. TECFIDERA [Suspect]
     Active Substance: DIMETHYL FUMARATE
     Indication: MULTIPLE SCLEROSIS
     Dates: start: 20131114, end: 20140108

REACTIONS (3)
  - Gait disturbance [Recovered/Resolved]
  - Speech disorder [Not Recovered/Not Resolved]
  - Confusional state [Unknown]

NARRATIVE: CASE EVENT DATE: 201503
